FAERS Safety Report 25980705 (Version 1)
Quarter: 2025Q4

REPORT INFORMATION
  Report Type: Spontaneous
  Country: EU (occurrence: EU)
  Receive Date: 20251030
  Receipt Date: 20251030
  Transmission Date: 20260117
  Serious: Yes (Hospitalization, Other)
  Sender: ALEXION PHARMACEUTICALS
  Company Number: EU-ASTRAZENECA-202510GLO026929RO

PATIENT
  Age: 58 Year
  Sex: Female
  Weight: 60 kg

DRUGS (19)
  1. CRESTOR [Suspect]
     Active Substance: ROSUVASTATIN CALCIUM
     Dosage: 5 MILLIGRAM
  2. CRESTOR [Suspect]
     Active Substance: ROSUVASTATIN CALCIUM
     Dosage: 10 MILLIGRAM
  3. FUROSEMIDE [Suspect]
     Active Substance: FUROSEMIDE
     Dosage: 5 MILLIGRAM
  4. FUROSEMIDE [Suspect]
     Active Substance: FUROSEMIDE
     Dosage: 5 MILLIGRAM
  5. DIGOXIN [Suspect]
     Active Substance: DIGOXIN
     Dosage: 0.25 MILLIGRAM
  6. DIGOXIN [Suspect]
     Active Substance: DIGOXIN
     Dosage: 0.25 MILLIGRAM
  7. METFORMIN [Suspect]
     Active Substance: METFORMIN HYDROCHLORIDE
     Dosage: 5 MILLIGRAM
  8. METFORMIN [Suspect]
     Active Substance: METFORMIN HYDROCHLORIDE
     Dosage: 500 MILLIGRAM
  9. SARUPARIB [Suspect]
     Active Substance: SARUPARIB
     Dosage: 60 MILLIGRAM, QD
     Dates: start: 20251002
  10. SARUPARIB [Suspect]
     Active Substance: SARUPARIB
     Dosage: 60 MILLIGRAM, QD
     Dates: start: 20251003
  11. SARUPARIB [Suspect]
     Active Substance: SARUPARIB
     Dosage: 60 MILLIGRAM, QD
     Dates: start: 20251004
  12. SARUPARIB [Suspect]
     Active Substance: SARUPARIB
     Dosage: 60 MILLIGRAM, QD
     Dates: start: 20251005
  13. SARUPARIB [Suspect]
     Active Substance: SARUPARIB
     Dosage: 60 MILLIGRAM, QD
     Dates: start: 20251006
  14. SARUPARIB [Suspect]
     Active Substance: SARUPARIB
     Dosage: MILLIGRAM
  15. RABEPRAZOLE [Suspect]
     Active Substance: RABEPRAZOLE
  16. HYDROCHLOROTHIAZIDE\NEBIVOLOL HYDROCHLORIDE [Concomitant]
     Active Substance: HYDROCHLOROTHIAZIDE\NEBIVOLOL HYDROCHLORIDE
     Indication: Hypertension
     Dosage: 5 MILLIGRAM, QD
     Dates: start: 2022
  17. ASPIRIN [Concomitant]
     Active Substance: ASPIRIN
     Indication: Prophylaxis
     Dosage: 75 MILLIGRAM, QD
     Dates: start: 20250408
  18. CLOPIDOGREL [Concomitant]
     Active Substance: CLOPIDOGREL BISULFATE
     Indication: Prophylaxis
     Dosage: 75 MILLIGRAM, QD
     Dates: start: 20250408
  19. LEVETIRACETAM [Concomitant]
     Active Substance: LEVETIRACETAM
     Indication: Epilepsy
     Dosage: 500 MILLIGRAM, BID
     Dates: start: 20250408

REACTIONS (1)
  - Haemoptysis [Recovering/Resolving]

NARRATIVE: CASE EVENT DATE: 20251012
